FAERS Safety Report 10631120 (Version 1)
Quarter: 2014Q4

REPORT INFORMATION
  Report Type: Spontaneous
  Country: US (occurrence: US)
  Receive Date: 20141205
  Receipt Date: 20141205
  Transmission Date: 20150529
  Serious: No
  Sender: FDA-Public Use
  Company Number: US-BRISTOL-MYERS SQUIBB COMPANY-20782439

PATIENT
  Age: 70 Year
  Sex: Female
  Weight: 75.28 kg

DRUGS (5)
  1. HYDROCHLOROTHIAZIDE. [Concomitant]
     Active Substance: HYDROCHLOROTHIAZIDE
     Dosage: ONGOING
  2. ASPIRIN. [Concomitant]
     Active Substance: ASPIRIN
  3. GLUCOPHAGE [Suspect]
     Active Substance: METFORMIN HYDROCHLORIDE
     Indication: TYPE 2 DIABETES MELLITUS
     Dosage: ONGOING
  4. IBUPROFEN. [Concomitant]
     Active Substance: IBUPROFEN
  5. MAVIK [Suspect]
     Active Substance: TRANDOLAPRIL
     Indication: BLOOD PRESSURE INCREASED
     Dosage: TABS
     Dates: start: 1995

REACTIONS (2)
  - Upper respiratory tract infection [Unknown]
  - Diarrhoea [Unknown]

NARRATIVE: CASE EVENT DATE: 2004
